FAERS Safety Report 6119681-X (Version None)
Quarter: 2009Q1

REPORT INFORMATION
  Report Type: 
  Country: None (occurrence: None)
  Receive Date: 20090316
  Receipt Date: 20090310
  Transmission Date: 20090719
  Serious: Yes (Hospitalization)
  Sender: FDA-Public Use
  Company Number: US-ASTRAZENECA-2009UW06239

PATIENT
  Sex: Male
  Weight: 72.6 kg

DRUGS (7)
  1. ATACAND [Suspect]
     Route: 048
  2. LANOXIN [Concomitant]
  3. INSULIN [Concomitant]
  4. PLAVIX [Concomitant]
  5. XANAX [Concomitant]
  6. ZANTAC [Concomitant]
  7. METFORMIN HCL [Concomitant]

REACTIONS (2)
  - ARTERIAL OCCLUSIVE DISEASE [None]
  - DYSPNOEA [None]
